FAERS Safety Report 18099430 (Version 1)
Quarter: 2020Q3

REPORT INFORMATION
  Report Type: Spontaneous
  Country: US (occurrence: US)
  Receive Date: 20200731
  Receipt Date: 20200731
  Transmission Date: 20201103
  Serious: Yes (Disabling, Other)
  Sender: FDA-Public Use
  Company Number: US-PURDUE-USA-2020-0160052

PATIENT
  Age: 39 Year
  Sex: Male

DRUGS (14)
  1. OXYCODONE/ ACETAMINOPHEN TABLETS [Suspect]
     Active Substance: ACETAMINOPHEN\OXYCODONE HYDROCHLORIDE
     Indication: MUSCULOSKELETAL INJURY
     Dosage: UNKNOWN
     Route: 048
  2. VICODIN ES [Suspect]
     Active Substance: ACETAMINOPHEN\HYDROCODONE BITARTRATE
     Indication: GROIN PAIN
     Dosage: 1 UNK, Q6H PRN
     Route: 065
     Dates: start: 20000321
  3. PERCOCET                           /00446701/ [Suspect]
     Active Substance: ACETAMINOPHEN\OXYCODONE HYDROCHLORIDE\OXYCODONE TEREPHTHALATE
     Indication: GROIN PAIN
     Dosage: 4 UNK, DAILY
     Route: 048
     Dates: start: 20000601
  4. OXYCODONE HYDROCHLORIDE (SIMILAR TO NDA 22?272) [Suspect]
     Active Substance: OXYCODONE HYDROCHLORIDE
     Dosage: 25 MG, PRN
     Route: 048
  5. OXYCONTIN [Suspect]
     Active Substance: OXYCODONE HYDROCHLORIDE
     Dosage: 40 MG, Q8H
     Route: 048
  6. OXYCONTIN [Suspect]
     Active Substance: OXYCODONE HYDROCHLORIDE
     Indication: BREAKTHROUGH PAIN
     Dosage: 30 MG, Q8H
     Route: 048
  7. OXYCONTIN [Suspect]
     Active Substance: OXYCODONE HYDROCHLORIDE
     Dosage: 60 MG, Q8H
     Route: 048
  8. OXYCONTIN [Suspect]
     Active Substance: OXYCODONE HYDROCHLORIDE
     Indication: MUSCULOSKELETAL INJURY
     Dosage: 30 MG, Q12H
     Route: 048
  9. OXYCODONE HYDROCHLORIDE (SIMILAR TO NDA 22?272) [Suspect]
     Active Substance: OXYCODONE HYDROCHLORIDE
     Indication: TESTICULAR PAIN
     Dosage: 15 MG, Q4H
     Route: 048
  10. PERCOCET                           /00446701/ [Suspect]
     Active Substance: ACETAMINOPHEN\OXYCODONE HYDROCHLORIDE\OXYCODONE TEREPHTHALATE
     Dosage: 2 TABLET, TID
     Route: 048
  11. HYDROCODONE BITARTRATE AND ACETAMINOPHEN [Suspect]
     Active Substance: ACETAMINOPHEN\HYDROCODONE BITARTRATE
     Indication: PRODUCT USED FOR UNKNOWN INDICATION
     Dosage: UNKNOWN
     Route: 048
  12. OXYCODONE HYDROCHLORIDE (SIMILAR TO NDA 22?272) [Suspect]
     Active Substance: OXYCODONE HYDROCHLORIDE
     Indication: MUSCULOSKELETAL INJURY
     Dosage: 10 MG, Q4H
     Route: 048
  13. OXYCONTIN [Suspect]
     Active Substance: OXYCODONE HYDROCHLORIDE
     Dosage: 50 MG, Q8H
     Route: 048
  14. PERCOCET                           /00446701/ [Suspect]
     Active Substance: ACETAMINOPHEN\OXYCODONE HYDROCHLORIDE\OXYCODONE TEREPHTHALATE
     Dosage: 10 UNK, DAILY
     Route: 048

REACTIONS (50)
  - Gastrointestinal pain [Unknown]
  - Diarrhoea [Unknown]
  - Hypertension [Unknown]
  - Dysphonia [Unknown]
  - Halo vision [Unknown]
  - Posture abnormal [Unknown]
  - Physiotherapy [Unknown]
  - Emotional distress [Recovered/Resolved]
  - Agitation [Unknown]
  - Affect lability [Unknown]
  - Ecchymosis [Unknown]
  - Erectile dysfunction [Unknown]
  - Weight decreased [Unknown]
  - Seasonal allergy [Unknown]
  - Penis injury [Unknown]
  - Imprisonment [Unknown]
  - Joint swelling [Recovered/Resolved]
  - Epididymal cyst [Unknown]
  - Drug abuse [Unknown]
  - Physical assault [Unknown]
  - Hyperhidrosis [Unknown]
  - Haematuria [Unknown]
  - Insomnia [Unknown]
  - Pain in extremity [Unknown]
  - Nausea [Unknown]
  - Myofascial pain syndrome [Unknown]
  - Memory impairment [Recovered/Resolved]
  - Abdominal pain upper [Unknown]
  - Chest pain [Unknown]
  - Testicular pain [Unknown]
  - Disturbance in attention [Recovered/Resolved]
  - Androgen deficiency [Unknown]
  - Drug dependence [Unknown]
  - Thinking abnormal [Unknown]
  - Back pain [Unknown]
  - Dysuria [Unknown]
  - Gastrointestinal disorder [Unknown]
  - Vision blurred [Unknown]
  - Melanocytic naevus [Unknown]
  - Headache [Unknown]
  - Theft [Unknown]
  - Decreased appetite [Unknown]
  - Depression [Unknown]
  - Dizziness [Unknown]
  - Nervousness [Unknown]
  - Arthralgia [Unknown]
  - Muscle spasms [Unknown]
  - Constipation [Recovered/Resolved]
  - Mood swings [Unknown]
  - Drug ineffective [Unknown]

NARRATIVE: CASE EVENT DATE: 20000708
